FAERS Safety Report 16797254 (Version 2)
Quarter: 2019Q3

REPORT INFORMATION
  Report Type: Spontaneous
  Country: FR (occurrence: FR)
  Receive Date: 20190912
  Receipt Date: 20190912
  Transmission Date: 20191005
  Serious: Yes (Hospitalization, Other)
  Sender: FDA-Public Use
  Company Number: FR-SUN PHARMACEUTICAL INDUSTRIES LTD-2019R1-215765

PATIENT
  Age: 72 Year
  Sex: Male

DRUGS (9)
  1. LEUPRORELIN [Concomitant]
     Active Substance: LEUPROLIDE ACETATE
     Indication: ADENOCARCINOMA
     Dosage: UNK
     Route: 065
  2. FUROSEMIDE. [Concomitant]
     Active Substance: FUROSEMIDE
     Indication: PRODUCT USED FOR UNKNOWN INDICATION
     Dosage: THERAPEUTIC INR BEWTEEN 2 AND 3
     Route: 065
  3. DIGOXIN. [Interacting]
     Active Substance: DIGOXIN
     Indication: ATRIAL FIBRILLATION
     Dosage: UNK
     Route: 065
  4. FLUINDIONE [Interacting]
     Active Substance: FLUINDIONE
     Indication: THROMBOSIS PROPHYLAXIS
     Dosage: 20 MILLIGRAM, QD
     Route: 065
  5. POTASSIUM CHLORIDE. [Concomitant]
     Active Substance: POTASSIUM CHLORIDE
     Indication: PRODUCT USED FOR UNKNOWN INDICATION
     Dosage: UNK
     Route: 065
  6. PANTOPRAZOLE [Suspect]
     Active Substance: PANTOPRAZOLE
     Indication: ANTACID THERAPY
     Dosage: UNK UNK, UNKNOWN FREQ. ()
     Route: 065
  7. XTANDI [Interacting]
     Active Substance: ENZALUTAMIDE
     Indication: PROSTATE CANCER
     Dosage: 160 MG, UNKNOWN FREQ
     Route: 048
     Dates: start: 201803, end: 201901
  8. NEBIVOLOL. [Concomitant]
     Active Substance: NEBIVOLOL
     Indication: PRODUCT USED FOR UNKNOWN INDICATION
     Dosage: UNK
     Route: 065
  9. ALPRAZOLAM. [Concomitant]
     Active Substance: ALPRAZOLAM
     Indication: PRODUCT USED FOR UNKNOWN INDICATION
     Dosage: UNK
     Route: 065

REACTIONS (18)
  - Gastric ulcer [Unknown]
  - Haemoglobin decreased [Unknown]
  - Gastrointestinal haemorrhage [Recovered/Resolved]
  - Oesophagitis [Not Recovered/Not Resolved]
  - Gastritis erosive [Not Recovered/Not Resolved]
  - Cardioactive drug level decreased [Unknown]
  - Haematemesis [Unknown]
  - International normalised ratio abnormal [Unknown]
  - International normalised ratio decreased [Unknown]
  - International normalised ratio abnormal [Recovered/Resolved]
  - Haemodynamic instability [Recovered/Resolved]
  - Rectal haemorrhage [Unknown]
  - Drug interaction [Unknown]
  - Enzyme induction [Unknown]
  - Drug level decreased [Unknown]
  - Drug interaction [Unknown]
  - Drug ineffective [Unknown]
  - Venous thrombosis [Unknown]

NARRATIVE: CASE EVENT DATE: 2018
